FAERS Safety Report 16110391 (Version 2)
Quarter: 2021Q4

REPORT INFORMATION
  Report Type: Spontaneous
  Country: ES (occurrence: ES)
  Receive Date: 20190325
  Receipt Date: 20211007
  Transmission Date: 20220303
  Serious: Yes (Other)
  Sender: FDA-Public Use
  Company Number: ES-AEMPS-466779

PATIENT
  Age: 76 Year
  Sex: Female

DRUGS (4)
  1. CANDESARTAN [Suspect]
     Active Substance: CANDESARTAN
     Indication: Hypertension
     Dosage: 32 MILLIGRAM, DAILY (1/24)
     Route: 048
     Dates: start: 20180520
  2. SIMVASTATIN [Suspect]
     Active Substance: SIMVASTATIN
     Indication: Hyperlipidaemia
     Dosage: 20 MILLIGRAM, DAILY (1/24 H.)
     Route: 048
     Dates: start: 20180520
  3. TORSEMIDE [Suspect]
     Active Substance: TORSEMIDE
     Indication: Hypertension
     Dosage: 5 MILLIGRAM, DAILY (1/24)
     Route: 048
     Dates: start: 20180520
  4. NITROFURANTOIN [Suspect]
     Active Substance: NITROFURANTOIN
     Indication: Cystitis
     Dosage: 50 MILLIGRAM, DAILY (1/24 H)
     Route: 048
     Dates: start: 20180516, end: 20181010

REACTIONS (2)
  - Pyrexia [Recovered/Resolved]
  - Oral discomfort [Unknown]

NARRATIVE: CASE EVENT DATE: 20180610
